FAERS Safety Report 23895779 (Version 1)
Quarter: 2024Q2

REPORT INFORMATION
  Report Type: Spontaneous
  Country: US (occurrence: None)
  Receive Date: 20240523
  Receipt Date: 20240523
  Transmission Date: 20240716
  Serious: Yes (Hospitalization)
  Sender: FDA-Public Use
  Company Number: None

PATIENT
  Age: 60 Year
  Sex: Female

DRUGS (20)
  1. JAKAFI [Suspect]
     Active Substance: RUXOLITINIB
     Indication: Graft versus host disease
     Dosage: 10 MG/MG  BID ORAL?
     Route: 048
  2. OLANZAPINE [Concomitant]
  3. ACETAMINOPHEN [Concomitant]
  4. VITAMIN D [Concomitant]
     Active Substance: VITAMIN D NOS
  5. ACYCLOVIR [Concomitant]
     Active Substance: ACYCLOVIR
  6. AMLODIPINE [Concomitant]
     Active Substance: AMLODIPINE BESYLATE
  7. ATOVAQUONE [Concomitant]
  8. BETAMETHASONE [Concomitant]
  9. CEFUROXIME [Concomitant]
  10. DICYCLOMINE [Concomitant]
  11. FLUTCASONE [Concomitant]
  12. GABAPENTIN [Concomitant]
  13. MIRTAZAPINE [Concomitant]
  14. ONDANSETRON [Concomitant]
  15. OXYCODONE [Concomitant]
  16. PANTOPRAZOLE [Concomitant]
  17. POSACONAZOLE [Concomitant]
  18. PREDNISONE [Concomitant]
  19. TRIAMCINOLONE [Concomitant]
  20. VITAMIN D2 [Concomitant]

REACTIONS (1)
  - Device related infection [None]

NARRATIVE: CASE EVENT DATE: 20240519
